FAERS Safety Report 14341592 (Version 1)
Quarter: 2017Q4

REPORT INFORMATION
  Report Type: Spontaneous
  Country: US (occurrence: US)
  Receive Date: 20171229
  Receipt Date: 20171229
  Transmission Date: 20180321
  Serious: No
  Sender: FDA-Public Use
  Company Number: None

PATIENT
  Age: 52 Year
  Sex: Female

DRUGS (1)
  1. AMPYRA [Suspect]
     Active Substance: DALFAMPRIDINE
     Indication: MULTIPLE SCLEROSIS
     Route: 048
     Dates: start: 20100810

REACTIONS (5)
  - Oropharyngeal pain [None]
  - Chills [None]
  - Headache [None]
  - Ear pain [None]
  - Pharyngitis [None]

NARRATIVE: CASE EVENT DATE: 20171207
